FAERS Safety Report 25682863 (Version 2)
Quarter: 2025Q3

REPORT INFORMATION
  Report Type: Report from Study
  Country: US (occurrence: US)
  Receive Date: 20250814
  Receipt Date: 20250818
  Transmission Date: 20251021
  Serious: Yes (Other)
  Sender: BRISTOL-MYERS SQUIBB COMPANY
  Company Number: US-BRISTOL-MYERS SQUIBB COMPANY-2025-113048

PATIENT
  Age: 51 Year
  Sex: Female
  Weight: 97.52 kg

DRUGS (10)
  1. ORENCIA [Suspect]
     Active Substance: ABATACEPT
     Indication: Rheumatoid arthritis
     Route: 058
     Dates: start: 2025
  2. NALTREXONE [Concomitant]
     Active Substance: NALTREXONE
     Indication: Product used for unknown indication
     Dosage: (CURVE APPETITE) 1 A DAY ( JUST STARTED SECOND BOTTLE
  3. LOSARTAN [Concomitant]
     Active Substance: LOSARTAN
     Indication: Blood pressure measurement
  4. NITROFURANTOIN [Concomitant]
     Active Substance: NITROFURANTOIN
     Indication: Product used for unknown indication
  5. TAMSULOSIN [Concomitant]
     Active Substance: TAMSULOSIN
     Indication: Product used for unknown indication
  6. GABAPENTIN [Concomitant]
     Active Substance: GABAPENTIN
     Indication: Product used for unknown indication
  7. AMITRIPTYLINE [Concomitant]
     Active Substance: AMITRIPTYLINE
     Indication: Product used for unknown indication
  8. TIZANIDINE [Concomitant]
     Active Substance: TIZANIDINE
     Indication: Product used for unknown indication
  9. OMEPRAZOLE [Concomitant]
     Active Substance: OMEPRAZOLE
     Indication: Product used for unknown indication
  10. MINERALS\VITAMINS [Concomitant]
     Active Substance: MINERALS\VITAMINS
     Indication: Product used for unknown indication

REACTIONS (1)
  - Kidney infection [Recovering/Resolving]

NARRATIVE: CASE EVENT DATE: 20250101
